FAERS Safety Report 5221602-9 (Version None)
Quarter: 2007Q1

REPORT INFORMATION
  Report Type: 
  Country: None (occurrence: None)
  Receive Date: 20070129
  Receipt Date: 20070117
  Transmission Date: 20070707
  Serious: Yes (Hospitalization)
  Sender: FDA-Public Use
  Company Number: JP-ELI_LILLY_AND_COMPANY-JP200611003489

PATIENT
  Age: 71 Year
  Sex: Male

DRUGS (8)
  1. ZYPREXA [Suspect]
     Indication: SCHIZOPHRENIA
     Dosage: 20 MG, DAILY (1/D)
     Route: 048
     Dates: start: 20060921, end: 20061025
  2. ZYPREXA [Suspect]
     Dosage: 15 MG, DAILY (1/D)
     Route: 048
     Dates: start: 20061026, end: 20061115
  3. ZYPREXA [Suspect]
     Dosage: 10 MG, DAILY (1/D)
     Route: 048
     Dates: start: 20061116, end: 20061122
  4. ZYPREXA [Suspect]
     Dosage: UNK, UNK
     Route: 048
     Dates: start: 20050217
  5. SILECE [Concomitant]
     Dosage: 2 MG, DAILY (1/D)
     Route: 048
     Dates: start: 20060921, end: 20061122
  6. LENDORMIN [Concomitant]
     Dosage: 0.25 MG, DAILY (1/D)
     Dates: start: 20060921
  7. SENNOSIDE A [Concomitant]
     Dosage: 24 MG, DAILY (1/D)
     Dates: start: 20060921
  8. DEPAKENE-R /JPN/ [Concomitant]
     Dosage: 400 MG, DAILY (1/D)
     Dates: start: 20061123

REACTIONS (3)
  - BRAIN CONTUSION [None]
  - SUBCUTANEOUS HAEMATOMA [None]
  - URINARY RETENTION [None]
